FAERS Safety Report 5294002-3 (Version None)
Quarter: 2007Q2

REPORT INFORMATION
  Report Type: 
  Country: None (occurrence: None)
  Receive Date: 20070405
  Receipt Date: 20070326
  Transmission Date: 20071010
  Serious: Yes (Hospitalization, Other)
  Sender: FDA-Public Use
  Company Number: 2006SP007640

PATIENT
  Age: 52 Year
  Sex: Male

DRUGS (2)
  1. PEG-INTRON [Suspect]
     Indication: HEPATITIS C
     Dosage: SC
     Route: 058
     Dates: start: 20060829
  2. RIBAVIRIN [Suspect]
     Indication: HEPATITIS C
     Dosage: PO
     Route: 048
     Dates: start: 20060829

REACTIONS (24)
  - AMNESIA [None]
  - ASTHENIA [None]
  - CARDIAC FAILURE CONGESTIVE [None]
  - CARDIAC FIBRILLATION [None]
  - CHEST PAIN [None]
  - CONDITION AGGRAVATED [None]
  - CONFUSIONAL STATE [None]
  - DEHYDRATION [None]
  - DEPRESSION [None]
  - DEVICE BREAKAGE [None]
  - DIABETES MELLITUS NON-INSULIN-DEPENDENT [None]
  - DYSPNOEA [None]
  - EYE PAIN [None]
  - FATIGUE [None]
  - GLAUCOMA [None]
  - HEADACHE [None]
  - HIGH DENSITY LIPOPROTEIN INCREASED [None]
  - HYPERSOMNIA [None]
  - INSOMNIA [None]
  - INTERVERTEBRAL DISC DEGENERATION [None]
  - MENTAL DISORDER [None]
  - NOCTURIA [None]
  - PHOTOPSIA [None]
  - RED BLOOD CELL COUNT DECREASED [None]
